FAERS Safety Report 13177834 (Version 10)
Quarter: 2018Q3

REPORT INFORMATION
  Report Type: Report from Study
  Country: None (occurrence: JP)
  Receive Date: 20170201
  Receipt Date: 20180907
  Transmission Date: 20181010
  Serious: Yes (Life-Threatening, Hospitalization)
  Sender: FDA-Public Use
  Company Number: JP-ABBVIE-16P-087-1773649-00

PATIENT
  Age: 79 Year
  Sex: Female

DRUGS (95)
  1. DUODOPA [Suspect]
     Active Substance: CARBIDOPA\LEVODOPA
     Dosage: MD: 4.5 ML, CD: 2.2 ML/HR X 12 HR, ED: 1.2 ML/UNIT X 3
     Route: 050
     Dates: start: 20161115, end: 20161129
  2. DUODOPA [Suspect]
     Active Substance: CARBIDOPA\LEVODOPA
     Dosage: MD: 4.5 ML, CD: 2.4 ML/HR X 12 HR, ED: 1.5 ML/UNIT X 3
     Route: 050
     Dates: start: 20170207, end: 20170209
  3. DUODOPA [Suspect]
     Active Substance: CARBIDOPA\LEVODOPA
     Dosage: MD: 4.5 ML, CD: 2.7 ML/HR X 12 HR, ED: 1.6 ML/UNIT X 3
     Route: 050
     Dates: start: 20170215, end: 20170316
  4. DUODOPA [Suspect]
     Active Substance: CARBIDOPA\LEVODOPA
     Dosage: MD: 4.7 ML, CD: 2.2 ML/HR X 12 HR, ED: 1.8 ML/UNIT X 3
     Route: 050
     Dates: start: 20171110, end: 20171121
  5. DUODOPA [Suspect]
     Active Substance: CARBIDOPA\LEVODOPA
     Dosage: MD: 4.7 ML, CD: 2.0 ML/HR X 15 HR, ED: 1.8 ML/UNIT X 3
     Route: 050
     Dates: start: 20171111
  6. DUODOPA [Suspect]
     Active Substance: CARBIDOPA\LEVODOPA
     Dosage: MD 4.5 ML, CD 2.0 ML/HRS ? 15 HOURS, ED 1.6 ML/TIMES ? 3 TIMES
     Route: 050
     Dates: start: 20180307, end: 20180425
  7. DUODOPA [Suspect]
     Active Substance: CARBIDOPA\LEVODOPA
     Dosage: MD 4.6 ML, CD 1.6 ML/HRS ? 15 HOURS, ED 1.3 ML/TIMES ? 2 TIMES
     Route: 050
     Dates: start: 20180528, end: 20180529
  8. DUODOPA [Suspect]
     Active Substance: CARBIDOPA\LEVODOPA
     Dosage: MD 4.6 ML, CD 1.9 ML/HRS ? 15 HOURS, ED 1.3 ML/TIMES ? 2 TIMES
     Route: 050
     Dates: start: 20180601, end: 20180604
  9. CLONAZEPAM. [Concomitant]
     Active Substance: CLONAZEPAM
     Indication: PRODUCT USED FOR UNKNOWN INDICATION
  10. PURIFIED SODIUM HYALURONATE [Concomitant]
     Indication: PRODUCT USED FOR UNKNOWN INDICATION
     Dosage: 1 DROP/EYE  EYE DROPS, SOLUTION
     Route: 047
  11. LEVODOPA BENSERAZIDE HYDROCHLO [Concomitant]
     Active Substance: BENSERAZIDE HYDROCHLORIDE\LEVODOPA
     Route: 048
     Dates: start: 20180118, end: 20180612
  12. ESOMEPRAZOLE MAGNESIUM DIHYDRATE [Concomitant]
     Active Substance: ESOMEPRAZOLE MAGNESIUM
     Indication: PRODUCT USED FOR UNKNOWN INDICATION
     Route: 048
     Dates: start: 20170815, end: 20180115
  13. DUODOPA [Suspect]
     Active Substance: CARBIDOPA\LEVODOPA
     Dosage: MD: 4.1 ML, CD: 2.1 ML/HR X 12 HR, ED: 1.2 ML/UNIT X 3, CD: INCREASED TO 2.3 ML/HR
     Route: 050
     Dates: start: 20161026, end: 20161108
  14. DUODOPA [Suspect]
     Active Substance: CARBIDOPA\LEVODOPA
     Dosage: MD: 4.7 ML, CD: 2.2 ML/HR X 12 HR, ED: 1.2 ML/UNIT X 3
     Route: 050
     Dates: start: 20161228, end: 20170116
  15. DUODOPA [Suspect]
     Active Substance: CARBIDOPA\LEVODOPA
     Dosage: MD: 4.5 ML, CD: 2.6 ML/HR X 15 HR, ED: 1.5 ML/UNIT
     Route: 050
     Dates: start: 20170117, end: 20170118
  16. DUODOPA [Suspect]
     Active Substance: CARBIDOPA\LEVODOPA
     Dosage: MD: 4.5 ML, CD: 2.4 ML/HR X 12 HR, ED: 1.4 ML/UNIT X 3
     Route: 050
     Dates: start: 20170125, end: 20170207
  17. DUODOPA [Suspect]
     Active Substance: CARBIDOPA\LEVODOPA
     Dosage: MD: 4.7 ML, CD: 2.0 ML/HR X 12 HR, ED: 1.4 ML/UNIT X 3
     Route: 050
     Dates: start: 20170620
  18. DUODOPA [Suspect]
     Active Substance: CARBIDOPA\LEVODOPA
     Dosage: MD 4.6 ML, CD 1.3 ML/HRS ? 15 HOURS, ED 1.6 ML/TIMES ? 2 TIMES
     Route: 050
     Dates: start: 20180507, end: 20180508
  19. DUODOPA [Suspect]
     Active Substance: CARBIDOPA\LEVODOPA
     Dosage: MD 4.6 ML, CD 1.3 ML/HRS ? 15 HOURS, ED 1.3 ML/TIMES ? 2 TIMES
     Route: 050
     Dates: start: 20180508, end: 20180509
  20. DUODOPA [Suspect]
     Active Substance: CARBIDOPA\LEVODOPA
     Dosage: MD 4.6 ML, CD 2.0 ML/HRS ? 15 HOURS, ED 1.3 ML/TIMES ? 2 TIMES
     Route: 050
     Dates: start: 20180604, end: 20180605
  21. MAGNESIUM OXIDE. [Concomitant]
     Active Substance: MAGNESIUM OXIDE
     Route: 048
  22. ALFACALCIDOL [Concomitant]
     Active Substance: ALFACALCIDOL
     Indication: PRODUCT USED FOR UNKNOWN INDICATION
  23. BROTIZOLAM [Concomitant]
     Active Substance: BROTIZOLAM
     Indication: PRODUCT USED FOR UNKNOWN INDICATION
     Route: 048
     Dates: end: 20180410
  24. MENESIT [Concomitant]
     Active Substance: CARBIDOPA\LEVODOPA
     Indication: PRODUCT USED FOR UNKNOWN INDICATION
     Route: 048
     Dates: end: 20170717
  25. ESOMEPRAZOLE MAGNESIUM HYDRATE [Concomitant]
     Active Substance: ESOMEPRAZOLE MAGNESIUM
     Indication: PRODUCT USED FOR UNKNOWN INDICATION
     Route: 048
     Dates: start: 20170815
  26. MAGNESIUM OXIDE. [Concomitant]
     Active Substance: MAGNESIUM OXIDE
     Indication: PRODUCT USED FOR UNKNOWN INDICATION
     Route: 050
     Dates: start: 20171121, end: 20180612
  27. LOXOPROFEN SODIUM HYDRATE [Concomitant]
     Active Substance: LOXOPROFEN SODIUM DIHYDRATE
     Indication: PRODUCT USED FOR UNKNOWN INDICATION
     Route: 050
     Dates: start: 20171121, end: 20180612
  28. DUODOPA [Suspect]
     Active Substance: CARBIDOPA\LEVODOPA
     Route: 050
     Dates: start: 20151206
  29. DUODOPA [Suspect]
     Active Substance: CARBIDOPA\LEVODOPA
     Dosage: MD: 4.5 ML, CD: 2.4 ML/HR X 12 HR, ED: 1.2 ML/UNIT X 3
     Route: 050
     Dates: start: 20161129, end: 20161213
  30. DUODOPA [Suspect]
     Active Substance: CARBIDOPA\LEVODOPA
     Dosage: MD: 4.7 ML, CD: 2.2 ML/HR X 12 HR, ED: 1.6 ML/UNIT X 3
     Route: 050
     Dates: start: 20170606, end: 20170620
  31. OFLOXACIN. [Concomitant]
     Active Substance: OFLOXACIN
     Indication: PRODUCT USED FOR UNKNOWN INDICATION
     Dosage: 1 DROP/EYE EYE DROPS, SOLUTION
     Route: 047
  32. VONOPRAZAN FUMARATE [Concomitant]
     Active Substance: VONOPRAZAN FUMURATE
     Indication: PRODUCT USED FOR UNKNOWN INDICATION
     Dates: start: 20180116, end: 20180612
  33. RAMELTEON [Concomitant]
     Active Substance: RAMELTEON
     Indication: PRODUCT USED FOR UNKNOWN INDICATION
     Route: 048
     Dates: end: 20180612
  34. RILMAZAFONE HYDROCHLORIDE HYDRATE [Concomitant]
     Active Substance: RILMAZAFONE HYDROCHLORIDE
     Indication: PRODUCT USED FOR UNKNOWN INDICATION
     Route: 048
     Dates: end: 20180410
  35. MOSAPRIDE CITRATE [Concomitant]
     Active Substance: MOSAPRIDE CITRATE
     Indication: PRODUCT USED FOR UNKNOWN INDICATION
     Route: 048
     Dates: end: 20180612
  36. ENEVO [Concomitant]
     Indication: PROPHYLAXIS
     Route: 048
     Dates: start: 20170509
  37. STALEVO [Concomitant]
     Active Substance: CARBIDOPA\ENTACAPONE\LEVODOPA
     Indication: PRODUCT USED FOR UNKNOWN INDICATION
     Route: 048
     Dates: start: 20170718
  38. DUODOPA [Suspect]
     Active Substance: CARBIDOPA\LEVODOPA
     Indication: PARKINSON^S DISEASE
     Dosage: 2.1 ML/H
     Route: 050
     Dates: start: 20141021
  39. DUODOPA [Suspect]
     Active Substance: CARBIDOPA\LEVODOPA
     Dosage: MD: 4.7 ML, CD: 2.3 ML/HR X 12 HR, ED: 1.2 ML/UNIT X 3
     Route: 050
     Dates: start: 20161227, end: 20161228
  40. DUODOPA [Suspect]
     Active Substance: CARBIDOPA\LEVODOPA
     Dosage: MD: 4.5 ML, CD: 2.6 ML/HR X 12 HR, ED: 1.5 ML/UNIT X 3
     Route: 050
     Dates: start: 20170210, end: 20170213
  41. DUODOPA [Suspect]
     Active Substance: CARBIDOPA\LEVODOPA
     Dosage: MD: 4.5 ML, CD: 2.8 ML/HR X 12 HR, ED: 1.5 ML/UNIT X 3
     Route: 050
     Dates: start: 20170213, end: 20170215
  42. DUODOPA [Suspect]
     Active Substance: CARBIDOPA\LEVODOPA
     Dosage: MD: 4.7 ML, CD: 2.3 ML/HR X 12 HR, ED: 1.4 ML/UNIT X 3
     Route: 050
     Dates: start: 20170425, end: 20170507
  43. DUODOPA [Suspect]
     Active Substance: CARBIDOPA\LEVODOPA
     Dosage: MD: 4.7 ML, CD: 2 ML/HR X 12 HR, ED: 1.4 ML/UNIT X 3
     Route: 050
     Dates: start: 20170507, end: 20170606
  44. DUODOPA [Suspect]
     Active Substance: CARBIDOPA\LEVODOPA
     Dosage: MD 4.6 ML, CD 1.4 ML/HRS ? 15 HOURS, ED 1.3 ML/TIMES ? 2 TIMES
     Route: 050
     Dates: start: 20180522, end: 20180525
  45. TRERIEF [Suspect]
     Active Substance: ZONISAMIDE
     Route: 048
     Dates: start: 20171121, end: 20180115
  46. QUETIAPINE FUMARATE. [Concomitant]
     Active Substance: QUETIAPINE FUMARATE
     Route: 065
     Dates: start: 20180502, end: 20180506
  47. SENNA LEAF/SENNA PODS [Concomitant]
     Indication: PRODUCT USED FOR UNKNOWN INDICATION
     Route: 048
  48. MENESIT [Concomitant]
     Active Substance: CARBIDOPA\LEVODOPA
     Route: 048
     Dates: start: 20170718
  49. LEVODOPA BENSERAZIDE HYDROCHLO [Concomitant]
     Active Substance: BENSERAZIDE HYDROCHLORIDE\LEVODOPA
     Route: 048
     Dates: start: 20180116
  50. SENNOSIDE A,B [Concomitant]
     Indication: PRODUCT USED FOR UNKNOWN INDICATION
     Dates: end: 20180306
  51. DUODOPA [Suspect]
     Active Substance: CARBIDOPA\LEVODOPA
     Dosage: MD: 4.8 ML, CD: 2.3 ML/HR X 12 HR, ED: 1.2 ML/UNIT X 3
     Route: 050
     Dates: start: 20161213, end: 20161227
  52. DUODOPA [Suspect]
     Active Substance: CARBIDOPA\LEVODOPA
     Dosage: MD: 4.5 ML, CD: 2.4 ML/HR X 15 HR, ED: 1.5 ML/UNIT X 3
     Route: 050
     Dates: start: 20170116, end: 20170117
  53. DUODOPA [Suspect]
     Active Substance: CARBIDOPA\LEVODOPA
     Dosage: MD: 4.5 ML, CD: 2.5 ML/HR X 12 HR, ED: 1.5 ML/UNIT X 3
     Route: 050
     Dates: start: 20170124, end: 20170125
  54. DUODOPA [Suspect]
     Active Substance: CARBIDOPA\LEVODOPA
     Dosage: MD: 4.5 ML, CD: 2.7 ML/HR X 12 HR, ED: 1.5 ML/UNIT X 3
     Route: 050
     Dates: start: 20170215, end: 20170215
  55. DUODOPA [Suspect]
     Active Substance: CARBIDOPA\LEVODOPA
     Dosage: MD: 4.7 ML, CD: 2.6 ML/HR X 12 HR, ED: 1.8 ML/UNIT X 3
     Route: 050
     Dates: start: 20171003, end: 20171110
  56. DUODOPA [Suspect]
     Active Substance: CARBIDOPA\LEVODOPA
     Dosage: MD 4.6 ML, CD 2.3 ML/HRS ? 15 HOURS, ED 1.6 ML/TIMES ? 3 TIMES
     Route: 050
     Dates: start: 20180425, end: 20180507
  57. DUODOPA [Suspect]
     Active Substance: CARBIDOPA\LEVODOPA
     Dosage: MD 4.6 ML, CD 1.1 ML/HRS ? 15 HOURS, ED 1.3 ML/TIMES ? 2 TIMES
     Route: 050
     Dates: start: 20180518, end: 20180519
  58. DUODOPA [Suspect]
     Active Substance: CARBIDOPA\LEVODOPA
     Dosage: MD 4.6 ML, CD 1.2 ML/HRS ? 15 HOURS, ED 1.3 ML/TIMES ? 2 TIMES
     Route: 050
     Dates: start: 20180519, end: 20180521
  59. DUODOPA [Suspect]
     Active Substance: CARBIDOPA\LEVODOPA
     Dosage: MD 4.6 ML, CD 2.2 ML/HRS ? 15 HOURS, ED 1.8 ML/TIMES ? 2 TIMES
     Route: 050
     Dates: start: 20180605, end: 20180612
  60. LEVODOPA + CARBIDOPA + ENTACAPONA CINFA [Concomitant]
     Indication: PRODUCT USED FOR UNKNOWN INDICATION
  61. DUODOPA [Suspect]
     Active Substance: CARBIDOPA\LEVODOPA
     Dosage: MD: 4.5 ML, CD: 2.6 ML/HR X 13 HR, ED: 1.5 ML/UNIT X 3
     Route: 050
     Dates: start: 20170119, end: 20170122
  62. DUODOPA [Suspect]
     Active Substance: CARBIDOPA\LEVODOPA
     Dosage: MD: 4.5 ML, CD: 2.5 ML/HR X 12HR, ED: 1.5 ML/UNIT X 3
     Route: 050
     Dates: start: 20170209, end: 20170210
  63. DUODOPA [Suspect]
     Active Substance: CARBIDOPA\LEVODOPA
     Dosage: MD 4.7 ML, CD 2.0 ML/HRS ? 12 HOURS, ED 1.8 ML/TIMES ? 3 TIMES
     Route: 050
     Dates: start: 20171121, end: 20180116
  64. DUODOPA [Suspect]
     Active Substance: CARBIDOPA\LEVODOPA
     Dosage: MD 4.7 ML, CD 2.0 ML/HRS ? 12 HOURS ,ED 1.5 ML/TIMES ? 3 TIMES
     Route: 050
     Dates: start: 20180116, end: 20180307
  65. DUODOPA [Suspect]
     Active Substance: CARBIDOPA\LEVODOPA
     Dosage: MD 4.6 ML, CD 1.5 ML/HRS ? 15 HOURS, ED 1.3 ML/TIMES ? 2 TIMES
     Route: 050
     Dates: start: 20180525, end: 20180528
  66. DUODOPA [Suspect]
     Active Substance: CARBIDOPA\LEVODOPA
     Dosage: MD 4.6 ML, CD 1.7 ML/HRS ? 15 HOURS, ED 1.3 ML/TIMES ? 2 TIMES
     Route: 050
     Dates: start: 20180529, end: 20180530
  67. DUODOPA [Suspect]
     Active Substance: CARBIDOPA\LEVODOPA
     Dosage: MD 4.6 ML, CD 1.8 ML/HRS ? 15 HOURS, ED 1.3 ML/TIMES ? 2 TIMES
     Route: 050
     Dates: start: 20180530, end: 20180601
  68. DOPACOL [Concomitant]
     Active Substance: CARBIDOPA\LEVODOPA
     Indication: PRODUCT USED FOR UNKNOWN INDICATION
     Route: 048
     Dates: start: 20161026
  69. QUETIAPINE FUMARATE. [Concomitant]
     Active Substance: QUETIAPINE FUMARATE
     Indication: PRODUCT USED FOR UNKNOWN INDICATION
     Dates: end: 20180310
  70. QUETIAPINE FUMARATE. [Concomitant]
     Active Substance: QUETIAPINE FUMARATE
     Route: 048
     Dates: start: 20180410, end: 20180417
  71. ZOLPIDEM TARTRATE. [Concomitant]
     Active Substance: ZOLPIDEM TARTRATE
     Indication: PRODUCT USED FOR UNKNOWN INDICATION
  72. URAPIDIL [Concomitant]
     Active Substance: URAPIDIL
     Indication: PRODUCT USED FOR UNKNOWN INDICATION
     Route: 048
     Dates: end: 20180612
  73. OXYBUTYNIN HYDROCHLORIDE [Concomitant]
     Active Substance: OXYBUTYNIN CHLORIDE
     Indication: PRODUCT USED FOR UNKNOWN INDICATION
     Route: 048
     Dates: end: 20180612
  74. LEVODOPA BENSERAZIDE HYDROCHLO [Concomitant]
     Active Substance: BENSERAZIDE HYDROCHLORIDE\LEVODOPA
     Indication: PRODUCT USED FOR UNKNOWN INDICATION
     Route: 048
     Dates: start: 20171031, end: 20180612
  75. FAMOTIDINE. [Concomitant]
     Active Substance: FAMOTIDINE
     Indication: PROPHYLAXIS
     Route: 042
     Dates: start: 20180612, end: 20180614
  76. TRERIEF [Suspect]
     Active Substance: ZONISAMIDE
     Indication: PRODUCT USED FOR UNKNOWN INDICATION
     Route: 050
  77. PYRIDOXAL PHOSPHATE HYDRATE [Concomitant]
     Indication: PRODUCT USED FOR UNKNOWN INDICATION
  78. MAGNESIUM OXIDE. [Concomitant]
     Active Substance: MAGNESIUM OXIDE
     Indication: PRODUCT USED FOR UNKNOWN INDICATION
     Dates: start: 20171121, end: 20180612
  79. LANSOPRAZOLE. [Concomitant]
     Active Substance: LANSOPRAZOLE
     Indication: PRODUCT USED FOR UNKNOWN INDICATION
     Route: 048
     Dates: start: 20170814
  80. MIANSERIN HYDROCHLORIDE [Concomitant]
     Active Substance: MIANSERIN HYDROCHLORIDE
     Indication: PRODUCT USED FOR UNKNOWN INDICATION
     Route: 048
     Dates: end: 20180612
  81. SUVOREXANT. [Concomitant]
     Active Substance: SUVOREXANT
     Indication: PRODUCT USED FOR UNKNOWN INDICATION
     Route: 048
     Dates: start: 20180409, end: 20180612
  82. DUODOPA [Suspect]
     Active Substance: CARBIDOPA\LEVODOPA
     Dosage: MD: 4.1 ML, CD: 2.2 ML/HR X 12 HR, ED: 1.2 ML/UNIT X 3
     Route: 050
     Dates: start: 20161108, end: 20161115
  83. DUODOPA [Suspect]
     Active Substance: CARBIDOPA\LEVODOPA
     Dosage: MD: 4.5 ML, CD: 2.6 ML/HR X 12 HR, ED: 1.5 ML/UNIT X 3
     Route: 050
     Dates: start: 20170123, end: 20170123
  84. DUODOPA [Suspect]
     Active Substance: CARBIDOPA\LEVODOPA
     Dosage: MD: 4.7 ML, CD: 2.3 ML/HR X 12 HR, ED: 1.6 ML/UNIT X 3
     Route: 050
     Dates: start: 20170317, end: 20170425
  85. DUODOPA [Suspect]
     Active Substance: CARBIDOPA\LEVODOPA
     Dosage: MD 4.6 ML, CD 1.0 ML/HRS ? 15 HOURS, ED 1.3 ML/TIMES ? 2 TIMES
     Route: 050
     Dates: start: 20180509, end: 20180518
  86. DUODOPA [Suspect]
     Active Substance: CARBIDOPA\LEVODOPA
     Dosage: MD 4.6 ML, CD 1.3 ML/HRS ? 15 HOURS, ED 1.3 ML/TIMES ? 2 TIMES
     Route: 050
     Dates: start: 20180521, end: 20180522
  87. PARENTERAL NUTRITION [Concomitant]
     Active Substance: AMINO ACIDS\DEXTROSE\ELECTROLYTES NOS
     Indication: PRODUCT USED FOR UNKNOWN INDICATION
  88. MENESIT [Concomitant]
     Active Substance: CARBIDOPA\LEVODOPA
     Indication: PARKINSON^S DISEASE
     Route: 048
     Dates: end: 201610
  89. SOLIFENACIN SUCCINATE. [Concomitant]
     Active Substance: SOLIFENACIN SUCCINATE
     Indication: PRODUCT USED FOR UNKNOWN INDICATION
     Route: 048
     Dates: end: 20180612
  90. DAIKENCHUTO [Concomitant]
     Active Substance: HERBALS
     Indication: PRODUCT USED FOR UNKNOWN INDICATION
     Route: 048
     Dates: end: 20180612
  91. LORAZEPAM. [Concomitant]
     Active Substance: LORAZEPAM
     Indication: PRODUCT USED FOR UNKNOWN INDICATION
     Dosage: PRN, ON THE TIME OF ANXIETY
     Route: 048
     Dates: end: 20180612
  92. CEFAZOLIN SODIUM. [Concomitant]
     Active Substance: CEFAZOLIN SODIUM
     Indication: PROPHYLAXIS
     Dosage: INTRAVENOUS
     Dates: start: 20170404, end: 20170404
  93. MENESIT [Concomitant]
     Active Substance: CARBIDOPA\LEVODOPA
     Indication: PRODUCT USED FOR UNKNOWN INDICATION
     Route: 048
     Dates: start: 20170718, end: 20180115
  94. DICLOFENAC SODIUM. [Concomitant]
     Active Substance: DICLOFENAC SODIUM
     Indication: PRODUCT USED FOR UNKNOWN INDICATION
     Dates: end: 20180612
  95. LEVODOPA [Concomitant]
     Active Substance: LEVODOPA
     Indication: PARKINSON^S DISEASE
     Route: 042

REACTIONS (17)
  - Dyspepsia [Recovering/Resolving]
  - Illusion [Recovered/Resolved]
  - Delusion [Recovered/Resolved with Sequelae]
  - Hypoacusis [Unknown]
  - Mobility decreased [Unknown]
  - Anosognosia [Recovering/Resolving]
  - Stoma site pain [Recovered/Resolved]
  - Stoma site infection [Recovering/Resolving]
  - Dermatitis infected [Recovering/Resolving]
  - Dyskinesia [Recovering/Resolving]
  - Stoma site extravasation [Recovered/Resolved]
  - Ileus [Recovered/Resolved]
  - Device issue [Unknown]
  - Hallucination, auditory [Recovering/Resolving]
  - Gallbladder necrosis [Recovered/Resolved]
  - Gallbladder volvulus [Recovered/Resolved]
  - Drug effect incomplete [Unknown]

NARRATIVE: CASE EVENT DATE: 201610
